FAERS Safety Report 4818267-4 (Version None)
Quarter: 2005Q3

REPORT INFORMATION
  Report Type: 
  Country: None (occurrence: None)
  Receive Date: 20050929
  Receipt Date: 20050622
  Transmission Date: 20060218
  Serious: No
  Sender: FDA-Public Use
  Company Number: 05P-163-0303762-00

PATIENT
  Age: 59 Year
  Sex: Female
  Weight: 68.0396 kg

DRUGS (9)
  1. HUMIRA [Suspect]
     Indication: RHEUMATOID ARTHRITIS
     Dosage: 40 MG, 1 IN 2 WK, SUBCUTANEOUS
     Route: 058
     Dates: start: 20040201
  2. METHOTREXATE [Concomitant]
  3. TRAZODONE HCL [Concomitant]
  4. LEXAPRO [Concomitant]
  5. HYDROCHLOROTHIAZIDE [Concomitant]
  6. POTASSIUM [Concomitant]
  7. FOLIC ACID [Concomitant]
  8. MULTI-VITAMINS [Concomitant]
  9. HYOSCYAMINE [Concomitant]

REACTIONS (2)
  - INJECTION SITE PAIN [None]
  - RHEUMATOID ARTHRITIS [None]
